FAERS Safety Report 18538936 (Version 1)
Quarter: 2020Q4

REPORT INFORMATION
  Report Type: Report from Study
  Country: US (occurrence: US)
  Receive Date: 20201124
  Receipt Date: 20201124
  Transmission Date: 20210114
  Serious: Yes (Hospitalization, Other)
  Sender: FDA-Public Use
  Company Number: US-BRISTOL-MYERS SQUIBB COMPANY-BMS-2020-096400

PATIENT
  Age: 49 Year
  Sex: Female
  Weight: 71.8 kg

DRUGS (11)
  1. ALLOPURINOL. [Concomitant]
     Active Substance: ALLOPURINOL
     Indication: TUMOUR LYSIS SYNDROME
     Dosage: UNK
     Route: 065
  2. BACLOFEN. [Concomitant]
     Active Substance: BACLOFEN
     Indication: PAIN
     Dosage: UNK
     Route: 065
  3. ACETAMINOPHEN. [Concomitant]
     Active Substance: ACETAMINOPHEN
     Indication: HEADACHE
     Dosage: UNK
     Route: 065
  4. MAGIC MOUTHWASH [Concomitant]
     Active Substance: DIPHENHYDRAMINE HYDROCHLORIDE\LIDOCAINE HYDROCHLORIDE\NYSTATIN
     Indication: ORAL PAIN
     Dosage: AS NEEDED
     Route: 065
  5. INOTUZUMAB OZOGAMICIN [Suspect]
     Active Substance: INOTUZUMAB OZOGAMICIN
     Indication: B-CELL PROLYMPHOCYTIC LEUKAEMIA
     Dosage: 1.2 MG/M2/CYCLE, ADMINISTERED IN 3 DIVIDED DOSES: DAY 1, DAY 8 AND DAY 15
     Route: 042
     Dates: start: 20201023
  6. HYDROXYUREA. [Suspect]
     Active Substance: HYDROXYUREA
     Indication: WHITE BLOOD CELL DISORDER
     Dosage: 2000 MILLIGRAM, Q6H
     Route: 048
     Dates: start: 20201016, end: 20201020
  7. POLYETHYLENE GLYCOL 3350. [Concomitant]
     Active Substance: POLYETHYLENE GLYCOL 3350
     Indication: CONSTIPATION
     Dosage: UNK
     Route: 065
  8. PRAMOXINE [Concomitant]
     Active Substance: PRAMOXINE
     Indication: PROCTALGIA
     Dosage: UNK
     Route: 065
  9. ACYCLOVIR [ACICLOVIR] [Concomitant]
     Active Substance: ACYCLOVIR
     Indication: INFECTION PROPHYLAXIS
     Dosage: UNK
     Route: 065
  10. ONDANSETRON [Concomitant]
     Active Substance: ONDANSETRON
     Indication: VOMITING
     Route: 065
  11. AMOXICILLIN;CLAVULANIC ACID [Concomitant]
     Active Substance: AMOXICILLIN\CLAVULANIC ACID
     Indication: INFECTION PROPHYLAXIS
     Dosage: UNK
     Route: 065

REACTIONS (6)
  - Febrile neutropenia [Recovered/Resolved]
  - Transaminases increased [Recovered/Resolved]
  - Vulvovaginal discomfort [Unknown]
  - Enterobacter test positive [Unknown]
  - Mucosal inflammation [Not Recovered/Not Resolved]
  - Dysuria [Unknown]

NARRATIVE: CASE EVENT DATE: 20201016
